FAERS Safety Report 26044804 (Version 1)
Quarter: 2025Q4

REPORT INFORMATION
  Report Type: Spontaneous
  Country: US (occurrence: US)
  Receive Date: 20251114
  Receipt Date: 20251114
  Transmission Date: 20260119
  Serious: No
  Sender: OPTINOSE INC
  Company Number: US-OPTINOSE US, INC.-2025OPT000199

PATIENT

DRUGS (1)
  1. XHANCE [Suspect]
     Active Substance: FLUTICASONE PROPIONATE
     Indication: Chronic sinusitis
     Dosage: 372 MICROGRAM (2 SPRAYS PER NOSTRIL), BID
     Route: 045

REACTIONS (2)
  - Upper-airway cough syndrome [Unknown]
  - Cough [Unknown]
